FAERS Safety Report 8227187-7 (Version None)
Quarter: 2012Q1

REPORT INFORMATION
  Report Type: 
  Country: None (occurrence: None)
  Receive Date: 20120322
  Receipt Date: 20120315
  Transmission Date: 20120608
  Serious: Yes (Hospitalization, Other)
  Sender: FDA-Public Use
  Company Number: US-JNJFOC-20120301502

PATIENT
  Age: 6 Decade
  Sex: Female

DRUGS (2)
  1. UNKNOWN MULTIPLE MEDICATION [Concomitant]
     Route: 065
  2. NUCYNTA ER [Suspect]
     Indication: PRODUCT USED FOR UNKNOWN INDICATION
     Dosage: 75 MG EVERY 6 HOURS AS NEEDED
     Route: 048

REACTIONS (2)
  - OVERDOSE [None]
  - POSTERIOR REVERSIBLE ENCEPHALOPATHY SYNDROME [None]
